FAERS Safety Report 4685080-0 (Version None)
Quarter: 2005Q2

REPORT INFORMATION
  Report Type: 
  Country: None (occurrence: None)
  Receive Date: 20050608
  Receipt Date: 20050513
  Transmission Date: 20051028
  Serious: Yes (Other)
  Sender: FDA-Public Use
  Company Number: 200514398GDDC

PATIENT
  Age: 54 Year
  Sex: Female
  Weight: 85 kg

DRUGS (10)
  1. DOCETAXEL [Suspect]
     Indication: NON-SMALL CELL LUNG CANCER
     Route: 042
     Dates: start: 20050301, end: 20050426
  2. NEXIUM [Concomitant]
     Indication: GASTROOESOPHAGEAL REFLUX DISEASE
     Dates: start: 20020101
  3. SSRI [Concomitant]
     Indication: DEPRESSION
     Dates: start: 20020101
  4. PARACETAMOL [Concomitant]
     Indication: HEADACHE
     Dates: start: 20020101
  5. PARACETAMOL [Concomitant]
     Indication: PAIN
     Dates: start: 20020101
  6. CELEBREX [Concomitant]
     Indication: ARTHRALGIA
     Route: 048
     Dates: start: 20050101, end: 20050320
  7. DUPHALAC [Concomitant]
     Indication: CONSTIPATION
     Route: 048
     Dates: start: 20050303, end: 20050303
  8. FUNGILIN [Concomitant]
     Indication: CANDIDIASIS
     Dosage: DOSE: 1-3
     Route: 048
     Dates: start: 20050322
  9. DEXAMETHASONE [Concomitant]
     Indication: NAUSEA
     Route: 048
     Dates: start: 20050301
  10. ZOFRAN [Concomitant]
     Indication: NAUSEA
     Route: 048
     Dates: start: 20050301

REACTIONS (4)
  - CONSTIPATION [None]
  - HEADACHE [None]
  - LETHARGY [None]
  - LICHENOID KERATOSIS [None]
